FAERS Safety Report 6953411-4 (Version None)
Quarter: 2010Q3

REPORT INFORMATION
  Report Type: 
  Country: None (occurrence: None)
  Receive Date: 20100829
  Receipt Date: 20100715
  Transmission Date: 20110219
  Serious: No
  Sender: FDA-Public Use
  Company Number: US-ABBOTT-10P-163-0652018-00

PATIENT
  Sex: Female
  Weight: 85.806 kg

DRUGS (7)
  1. NIASPAN [Suspect]
     Indication: DYSLIPIDAEMIA
     Route: 048
     Dates: start: 20100530
  2. NIASPAN [Suspect]
     Dosage: DAILY
     Route: 048
  3. GABAPENTIN [Concomitant]
     Indication: PRODUCT USED FOR UNKNOWN INDICATION
     Route: 048
  4. ANOPROX [Concomitant]
     Indication: DYSMENORRHOEA
     Route: 048
  5. ANOPROX [Concomitant]
     Indication: MIGRAINE
  6. METOPROLOL [Concomitant]
     Indication: PRODUCT USED FOR UNKNOWN INDICATION
     Route: 048
  7. OTC NASAL DECONGESTION [Concomitant]
     Indication: PRODUCT USED FOR UNKNOWN INDICATION
     Route: 045

REACTIONS (2)
  - DIZZINESS [None]
  - PHOTOPSIA [None]
